FAERS Safety Report 8803886 (Version 3)
Quarter: 2012Q4

REPORT INFORMATION
  Report Type: 
  Country: US (occurrence: US)
  Receive Date: 20120924
  Receipt Date: 20121113
  Transmission Date: 20130627
  Serious: No
  Sender: FDA-Public Use
  Company Number: US-PFIZER INC-2012235096

PATIENT
  Age: 34 Year
  Sex: Female
  Weight: 65.76 kg

DRUGS (6)
  1. PRISTIQ [Suspect]
     Indication: DEPRESSION
     Dosage: 50 mg, daily
     Route: 048
     Dates: start: 20120731
  2. PRISTIQ [Suspect]
     Indication: ANXIETY
  3. ZOLOFT [Suspect]
     Indication: DEPRESSION
     Dosage: 100 mg, daily
     Dates: start: 200504, end: 201206
  4. ZOLOFT [Suspect]
     Indication: ANXIETY
     Dosage: 50 mg, daily
     Dates: start: 201206, end: 20120827
  5. ZOLOFT [Suspect]
     Dosage: 25 mg, daily
     Dates: start: 20120828, end: 20120904
  6. TRI-SPRINTEC [Concomitant]
     Indication: BIRTH CONTROL
     Dosage: UNK, daily

REACTIONS (2)
  - Drug ineffective [Unknown]
  - Feeling abnormal [Not Recovered/Not Resolved]
